FAERS Safety Report 7000764-7 (Version None)
Quarter: 2010Q3

REPORT INFORMATION
  Report Type: 
  Country: None (occurrence: None)
  Receive Date: 20100920
  Receipt Date: 20070807
  Transmission Date: 20110219
  Serious: Yes (Other)
  Sender: FDA-Public Use
  Company Number: US-ASTRAZENECA-2007UW12205

PATIENT
  Age: 331 Month
  Sex: Female

DRUGS (10)
  1. SEROQUEL [Suspect]
     Indication: BIPOLAR DISORDER
     Dosage: 50-400MG
     Route: 048
     Dates: start: 20020402, end: 20040601
  2. SEROQUEL [Suspect]
     Indication: SCHIZOPHRENIA
     Dosage: 50-400MG
     Route: 048
     Dates: start: 20020402, end: 20040601
  3. SEROQUEL [Suspect]
     Route: 048
     Dates: start: 20031210
  4. SEROQUEL [Suspect]
     Route: 048
     Dates: start: 20031210
  5. RISPERDAL-M [Concomitant]
     Dates: start: 20070101
  6. RISPERDAL-M [Concomitant]
     Route: 048
     Dates: start: 20061005
  7. LISINOPRIL AND HYDROCHLOROTHIAZIDE [Concomitant]
     Dosage: LISINOPRIL (10 MG)- HYDROCHLOROTHIAZIDE (12.5 MG)
     Route: 048
     Dates: start: 20061005
  8. NEXIUM [Concomitant]
     Dosage: 20 MG - 40 MG DAILY
     Route: 048
     Dates: start: 20061004
  9. CARISOPRODOL [Concomitant]
     Dates: start: 20031210
  10. ALPRAZOLAM [Concomitant]
     Dates: start: 20031210

REACTIONS (4)
  - DIABETES MELLITUS INADEQUATE CONTROL [None]
  - OBESITY [None]
  - TYPE 1 DIABETES MELLITUS [None]
  - WEIGHT DECREASED [None]
